FAERS Safety Report 12683836 (Version 1)
Quarter: 2016Q3

REPORT INFORMATION
  Report Type: Spontaneous
  Country: US (occurrence: US)
  Receive Date: 20160825
  Receipt Date: 20160825
  Transmission Date: 20161109
  Serious: No
  Sender: FDA-Public Use
  Company Number: US-009507513-1608USA000242

PATIENT
  Sex: Male

DRUGS (7)
  1. CAPECITABINE. [Concomitant]
     Active Substance: CAPECITABINE
     Indication: NEOPLASM RECURRENCE
     Dosage: 1000 MG, QAM, DAYS 1-14 EVERY 28-DAY CYCLE, 2 CYCLES
  2. TEMOZOLOMIDE. [Suspect]
     Active Substance: TEMOZOLOMIDE
     Dosage: 75 MG/M2/DAY
  3. CABERGOLINE. [Concomitant]
     Active Substance: CABERGOLINE
     Indication: HYPERCORTICOIDISM
     Dosage: UNK
  4. KETOCONAZOLE. [Concomitant]
     Active Substance: KETOCONAZOLE
     Indication: HYPERCORTICOIDISM
     Dosage: UNK
  5. TEMOZOLOMIDE. [Suspect]
     Active Substance: TEMOZOLOMIDE
     Indication: NEOPLASM RECURRENCE
     Dosage: 200 MG/M2/DAY, DAYS 1-5 EVERY 28-DAY CYCLE, 15 CYCLES
  6. TEMOZOLOMIDE. [Suspect]
     Active Substance: TEMOZOLOMIDE
     Indication: METASTASES TO LYMPH NODES
     Dosage: 100 MG/M2/DAY, DAYS 10-14,EVERY 28-DAY CYCLE, 2 CYCLES
  7. CAPECITABINE. [Concomitant]
     Active Substance: CAPECITABINE
     Indication: METASTASES TO LYMPH NODES
     Dosage: 1500 MG, QPM, DAYS 1-14 EVERY 28-DAY CYCLE, 2 CYCLES

REACTIONS (1)
  - Fatigue [Unknown]
